FAERS Safety Report 11746490 (Version 2)
Quarter: 2015Q4

REPORT INFORMATION
  Report Type: Spontaneous
  Country: NL (occurrence: NL)
  Receive Date: 20151117
  Receipt Date: 20151203
  Transmission Date: 20160304
  Serious: Yes (Life-Threatening)
  Sender: FDA-Public Use
  Company Number: NL-VIIV HEALTHCARE LIMITED-NL2015GSK162734

PATIENT
  Age: 49 Year
  Sex: Male
  Weight: 82 kg

DRUGS (1)
  1. TRIUMEQ [Suspect]
     Active Substance: ABACAVIR SULFATE\DOLUTEGRAVIR SODIUM\LAMIVUDINE
     Indication: HIV INFECTION
     Dosage: 1 UNK, QD
     Dates: start: 20150615, end: 20151104

REACTIONS (1)
  - Mental disorder [Not Recovered/Not Resolved]

NARRATIVE: CASE EVENT DATE: 20150715
